FAERS Safety Report 5568018-3 (Version None)
Quarter: 2007Q4

REPORT INFORMATION
  Report Type: 
  Country: None (occurrence: None)
  Receive Date: 20071220
  Receipt Date: 20071211
  Transmission Date: 20080405
  Serious: Yes (Death)
  Sender: FDA-Public Use
  Company Number: US-JNJFOC-20071104733

PATIENT
  Sex: Male
  Weight: 86.18 kg

DRUGS (8)
  1. INVEGA [Suspect]
     Indication: PSYCHOTIC BEHAVIOUR
     Route: 048
  2. INVEGA [Suspect]
     Indication: BIPOLAR DISORDER
     Route: 048
  3. LUNESTA [Concomitant]
     Indication: SLEEP DISORDER
     Route: 048
  4. LEXAPRO [Concomitant]
     Indication: DEPRESSION
     Route: 048
  5. WELLBUTRIN XL [Concomitant]
     Indication: DEPRESSION
     Route: 048
  6. ATENOLOL [Concomitant]
     Indication: BLOOD PRESSURE
  7. ZESTRIL [Concomitant]
     Indication: DRUG USE FOR UNKNOWN INDICATION
  8. ZOCOR [Concomitant]

REACTIONS (1)
  - MYOCARDIAL INFARCTION [None]
